FAERS Safety Report 4939905-1 (Version None)
Quarter: 2006Q1

REPORT INFORMATION
  Report Type: 
  Country: None (occurrence: None)
  Receive Date: 20060310
  Receipt Date: 20060307
  Transmission Date: 20060701
  Serious: Yes (Life-Threatening, Disabling)
  Sender: FDA-Public Use
  Company Number: US-GLAXOSMITHKLINE-A0596520A

PATIENT
  Sex: Female

DRUGS (4)
  1. LAMICTAL [Suspect]
     Indication: DEPRESSION
     Dosage: 150MG PER DAY
     Route: 048
  2. VITAMIN [Concomitant]
  3. ATIVAN [Concomitant]
  4. TYLENOL (CAPLET) [Concomitant]

REACTIONS (6)
  - AMNESIA [None]
  - BLOOD CHOLESTEROL DECREASED [None]
  - DIARRHOEA [None]
  - GIARDIASIS [None]
  - SUICIDAL IDEATION [None]
  - VITAMIN B12 DEFICIENCY [None]
